FAERS Safety Report 9348307 (Version 2)
Quarter: 2013Q2

REPORT INFORMATION
  Report Type: Spontaneous
  Country: US (occurrence: US)
  Receive Date: 20130614
  Receipt Date: 20130627
  Transmission Date: 20140414
  Serious: Yes (Death)
  Sender: FDA-Public Use
  Company Number: US-PFIZER INC-2013174527

PATIENT
  Age: 68 Year
  Sex: Male

DRUGS (1)
  1. VFEND [Suspect]
     Indication: LUNG DISORDER
     Dosage: 300 MG, 2X/DAY
     Dates: start: 20121018

REACTIONS (2)
  - Lymphoma [Fatal]
  - Lower respiratory tract infection bacterial [Fatal]
